FAERS Safety Report 8259148-6 (Version None)
Quarter: 2012Q2

REPORT INFORMATION
  Report Type: 
  Country: None (occurrence: None)
  Receive Date: 20120404
  Receipt Date: 20120320
  Transmission Date: 20120825
  Serious: Yes (Other)
  Sender: FDA-Public Use
  Company Number: CHPA2012US005433

PATIENT
  Sex: Male

DRUGS (2)
  1. EXCEDRIN TENSION HEADACHE CAPLETS [Suspect]
     Indication: ANTIINFLAMMATORY THERAPY
     Dosage: 1 DF, PRN
     Route: 048
  2. EXCEDRIN EXTRA STRENGTH TABLETS [Suspect]
     Dosage: 1 DF, PRN
     Route: 048

REACTIONS (3)
  - PROSTATE CANCER [None]
  - UNDERDOSE [None]
  - POLYCYTHAEMIA [None]
